FAERS Safety Report 20184883 (Version 2)
Quarter: 2022Q1

REPORT INFORMATION
  Report Type: Report from Study
  Country: BR (occurrence: BR)
  Receive Date: 20211214
  Receipt Date: 20220309
  Transmission Date: 20220424
  Serious: Yes (Hospitalization)
  Sender: FDA-Public Use
  Company Number: BR-ABBVIE-21K-020-4196052-00

PATIENT
  Age: 63 Year
  Sex: Female
  Weight: 76 kg

DRUGS (1)
  1. RINVOQ [Suspect]
     Active Substance: UPADACITINIB
     Indication: Rheumatoid arthritis
     Route: 048
     Dates: start: 20210907, end: 202111

REACTIONS (7)
  - Pain [Not Recovered/Not Resolved]
  - Herpes zoster [Not Recovered/Not Resolved]
  - Arrhythmia [Not Recovered/Not Resolved]
  - Thyroid disorder [Unknown]
  - Wound complication [Not Recovered/Not Resolved]
  - Skin lesion [Unknown]
  - Dysphonia [Unknown]

NARRATIVE: CASE EVENT DATE: 20211025
